FAERS Safety Report 5335845-7 (Version None)
Quarter: 2007Q2

REPORT INFORMATION
  Report Type: 
  Country: None (occurrence: None)
  Receive Date: 20070321
  Receipt Date: 20060817
  Transmission Date: 20071010
  Serious: Yes (Other)
  Sender: FDA-Public Use
  Company Number: 2006084313

PATIENT
  Age: 59 Year
  Sex: Female

DRUGS (3)
  1. XALATAN [Suspect]
     Indication: DRUG USE FOR UNKNOWN INDICATION
     Dosage: 2 DROP (1 DROP, BEDTIME) OPHTHALMIC
     Route: 047
     Dates: start: 20031212
  2. SYNTHROID [Concomitant]
  3. AMBIEN [Concomitant]

REACTIONS (2)
  - EYE IRRITATION [None]
  - RETINAL PIGMENTATION [None]
